FAERS Safety Report 23705642 (Version 5)
Quarter: 2024Q4

REPORT INFORMATION
  Report Type: Spontaneous
  Country: US (occurrence: US)
  Receive Date: 20240404
  Receipt Date: 20241021
  Transmission Date: 20250115
  Serious: Yes (Other)
  Sender: BRISTOL-MYERS SQUIBB COMPANY
  Company Number: US-BRISTOL-MYERS SQUIBB COMPANY-2024-052937

PATIENT
  Age: 60 Year
  Sex: Female

DRUGS (4)
  1. LENALIDOMIDE [Suspect]
     Active Substance: LENALIDOMIDE
     Indication: Plasma cell myeloma in remission
     Dosage: FREQUENCY: TAKE 1 CAPSULE BY MOUTH ONCE DAILY ON DAYS 1-21 OF EVERY 28 DAY
     Route: 048
  2. LENALIDOMIDE [Suspect]
     Active Substance: LENALIDOMIDE
     Dosage: TAKE 1 CAPSULE BY MOUTH EVERY DAY ON DAYS 1-21 OF EVERY 28 DAY CYCLE (3 WEEKS ON, THEN
     Route: 048
  3. LENALIDOMIDE [Suspect]
     Active Substance: LENALIDOMIDE
     Dosage: TAKE 1 CAPSULE BY MOUTH EVERY DAY ON DAYS 1-21 OF EVERY 28-DAY CYCLE (3 WEEKS ON, THEN 1 WEEK OFF)
     Route: 048
  4. LENALIDOMIDE [Suspect]
     Active Substance: LENALIDOMIDE
     Dosage: TAKE 1 CAPSULE BY MOUTH EVERY DAY ON DAYS 1-21 OF EVERY 28-DAY CYCLE (3 WEEKS ON, THEN 1 WEEK OFF)
     Route: 048

REACTIONS (7)
  - Red blood cell count decreased [Unknown]
  - Limb discomfort [Unknown]
  - Rash pruritic [Recovered/Resolved]
  - Tooth infection [Unknown]
  - Muscle spasms [Recovering/Resolving]
  - Oral infection [Recovering/Resolving]
  - Tooth disorder [Unknown]
